FAERS Safety Report 8767611 (Version 1)
Quarter: 2012Q4

REPORT INFORMATION
  Report Type: 
  Country: US (occurrence: US)
  Receive Date: 20120904
  Receipt Date: 20120904
  Transmission Date: 20130627
  Serious: No
  Sender: FDA-Public Use
  Company Number: US-PFIZER INC-2012213126

PATIENT
  Age: 48 Year
  Sex: Female

DRUGS (3)
  1. ADVIL [Suspect]
     Indication: HEADACHE
     Dosage: UNK
  2. ADVIL [Suspect]
     Indication: BACK PAIN
  3. ADVIL [Suspect]
     Indication: DYSMENORRHOEA

REACTIONS (1)
  - Drug ineffective [Unknown]
